FAERS Safety Report 11984093 (Version 3)
Quarter: 2016Q1

REPORT INFORMATION
  Report Type: Spontaneous
  Country: US (occurrence: US)
  Receive Date: 20160201
  Receipt Date: 20160311
  Transmission Date: 20160526
  Serious: Yes (Hospitalization, Disabling)
  Sender: FDA-Public Use
  Company Number: PHEH2016US002400

PATIENT
  Age: 46 Year
  Sex: Male
  Weight: 120.64 kg

DRUGS (1)
  1. GILENYA [Suspect]
     Active Substance: FINGOLIMOD HYDROCHLORIDE
     Indication: MULTIPLE SCLEROSIS
     Dosage: 0.5 MG, QD
     Route: 048

REACTIONS (4)
  - Herpes zoster [Unknown]
  - Cryptococcal cutaneous infection [Unknown]
  - Rash [Unknown]
  - Pneumonia cryptococcal [Unknown]

NARRATIVE: CASE EVENT DATE: 20150825
